FAERS Safety Report 19008424 (Version 1)
Quarter: 2021Q1

REPORT INFORMATION
  Report Type: Other
  Country: US (occurrence: US)
  Receive Date: 20210316
  Receipt Date: 20210316
  Transmission Date: 20210420
  Serious: No
  Sender: FDA-Public Use
  Company Number: US-ROCHE-2788933

PATIENT
  Sex: Female

DRUGS (3)
  1. TYSABRI [Concomitant]
     Active Substance: NATALIZUMAB
  2. OCREVUS [Suspect]
     Active Substance: OCRELIZUMAB
     Dosage: ONGOING NO
     Route: 042
  3. OCREVUS [Suspect]
     Active Substance: OCRELIZUMAB
     Indication: RELAPSING-REMITTING MULTIPLE SCLEROSIS
     Dosage: 300MG 1V ON DAY 1 + DAY 14, 600 MG N EVERY 6 MONTHS, ONGOING NO?05/MAR/2020, 20/FEB/2020, 02/OCT/202
     Route: 042

REACTIONS (2)
  - JC polyomavirus test positive [Unknown]
  - COVID-19 [Unknown]
